FAERS Safety Report 14294421 (Version 1)
Quarter: 2017Q4

REPORT INFORMATION
  Report Type: Spontaneous
  Country: IN (occurrence: IN)
  Receive Date: 20171218
  Receipt Date: 20171218
  Transmission Date: 20180321
  Serious: Yes (Hospitalization)
  Sender: FDA-Public Use
  Company Number: IN-UNICHEM PHARMACEUTICALS (USA) INC-UCM201712-000308

PATIENT
  Age: 79 Year
  Sex: Male

DRUGS (1)
  1. QUETIAPINE. [Suspect]
     Active Substance: QUETIAPINE
     Indication: SCHIZOPHRENIA

REACTIONS (1)
  - Joint dislocation [Recovered/Resolved]
